FAERS Safety Report 7962470-1 (Version None)
Quarter: 2011Q4

REPORT INFORMATION
  Report Type: 
  Country: None (occurrence: None)
  Receive Date: 20111207
  Receipt Date: 20111130
  Transmission Date: 20120403
  Serious: Yes (Hospitalization)
  Sender: FDA-Public Use
  Company Number: US-GLAXOSMITHKLINE-A0878551A

PATIENT
  Age: 20 Year
  Sex: Female

DRUGS (2)
  1. AVANDIA [Suspect]
     Indication: DIABETES MELLITUS
     Dosage: 4MG TWICE PER DAY
     Route: 048
     Dates: start: 20040101
  2. AVANDARYL [Suspect]
     Indication: DIABETES MELLITUS

REACTIONS (4)
  - BONE SARCOMA [None]
  - CHEST PAIN [None]
  - AMPUTATION [None]
  - BREAST CANCER RECURRENT [None]
